FAERS Safety Report 21979749 (Version 1)
Quarter: 2023Q1

REPORT INFORMATION
  Report Type: Other
  Country: CN (occurrence: None)
  Receive Date: 20230210
  Receipt Date: 20230210
  Transmission Date: 20230418
  Serious: Yes (Other)
  Sender: FDA-Public Use
  Company Number: CN-ROCHE-3280670

PATIENT
  Age: 31 Year
  Sex: Female

DRUGS (18)
  1. CAPECITABINE [Suspect]
     Active Substance: CAPECITABINE
     Indication: Rectal adenocarcinoma
     Route: 065
     Dates: start: 202012, end: 202101
  2. CAPECITABINE [Suspect]
     Active Substance: CAPECITABINE
     Route: 065
     Dates: start: 202102, end: 202105
  3. CAPECITABINE [Suspect]
     Active Substance: CAPECITABINE
     Route: 065
     Dates: start: 202105, end: 202106
  4. BEVACIZUMAB [Suspect]
     Active Substance: BEVACIZUMAB
     Indication: Rectal adenocarcinoma
     Dosage: FOUR CYCLES
     Route: 065
     Dates: start: 202102, end: 202105
  5. BEVACIZUMAB [Suspect]
     Active Substance: BEVACIZUMAB
     Route: 065
     Dates: start: 202105, end: 202106
  6. VEMURAFENIB [Suspect]
     Active Substance: VEMURAFENIB
     Indication: Rectal adenocarcinoma
     Route: 065
     Dates: start: 202109, end: 20211116
  7. VEMURAFENIB [Suspect]
     Active Substance: VEMURAFENIB
     Indication: Carbohydrate antigen 19-9 increased
     Route: 048
     Dates: start: 20211201
  8. OXALIPLATIN [Suspect]
     Active Substance: OXALIPLATIN
     Indication: Rectal adenocarcinoma
     Route: 065
     Dates: start: 202012, end: 202101
  9. OXALIPLATIN [Suspect]
     Active Substance: OXALIPLATIN
     Route: 065
     Dates: start: 202102, end: 202105
  10. OXALIPLATIN [Suspect]
     Active Substance: OXALIPLATIN
     Route: 065
     Dates: start: 202105, end: 202106
  11. IRINOTECAN [Concomitant]
     Active Substance: IRINOTECAN
  12. CAMRELIZUMAB [Concomitant]
     Active Substance: CAMRELIZUMAB
     Dates: start: 202105, end: 202106
  13. CAMRELIZUMAB [Concomitant]
     Active Substance: CAMRELIZUMAB
     Dosage: TWO CYCLES AFTER MULTI-DISCIPLINARY TREATMENT
     Dates: start: 202107, end: 202108
  14. CAMRELIZUMAB [Concomitant]
     Active Substance: CAMRELIZUMAB
     Dosage: TWO CYCLES AFTER MULTI-DISCIPLINARY TREATMENT
     Dates: start: 202109, end: 202111
  15. REGORAFENIB [Concomitant]
     Active Substance: REGORAFENIB
     Dosage: TWO CYCLES AFTER MULTI-DISCIPLINARY TREATMENT
     Dates: start: 202107, end: 202108
  16. CETUXIMAB [Concomitant]
     Active Substance: CETUXIMAB
     Dates: start: 202109, end: 202111
  17. TRAMETINIB [Concomitant]
     Active Substance: TRAMETINIB
     Dates: start: 202202
  18. DABRAFENIB [Concomitant]
     Active Substance: DABRAFENIB

REACTIONS (4)
  - Myelosuppression [Unknown]
  - Pancreatitis [Unknown]
  - Nausea [Unknown]
  - Vomiting [Unknown]
